FAERS Safety Report 20489213 (Version 2)
Quarter: 2022Q1

REPORT INFORMATION
  Report Type: Spontaneous
  Country: JP (occurrence: JP)
  Receive Date: 20220218
  Receipt Date: 20220329
  Transmission Date: 20220423
  Serious: Yes (Other)
  Sender: FDA-Public Use
  Company Number: JP-Merck Healthcare KGaA-9298860

PATIENT

DRUGS (2)
  1. ERBITUX [Suspect]
     Active Substance: CETUXIMAB
     Indication: Glottis carcinoma
     Dosage: UNK UNK, UNKNOWN
     Route: 041
  2. PACLITAXEL [Suspect]
     Active Substance: PACLITAXEL
     Indication: Glottis carcinoma
     Dosage: UNK UNK, UNKNOWN 5 MG/ML
     Route: 065

REACTIONS (3)
  - Duodenal ulcer [Unknown]
  - Mucosal inflammation [Unknown]
  - Off label use [Unknown]
